FAERS Safety Report 17359948 (Version 1)
Quarter: 2020Q1

REPORT INFORMATION
  Report Type: Report from Study
  Country: DE (occurrence: DE)
  Receive Date: 20200203
  Receipt Date: 20200203
  Transmission Date: 20200409
  Serious: Yes (Other)
  Sender: FDA-Public Use
  Company Number: DE-ROCHE-2537976

PATIENT
  Sex: Male

DRUGS (8)
  1. RANIBIZUMAB. [Suspect]
     Active Substance: RANIBIZUMAB
     Dosage: 0.5 MG, RIGHT EYE
     Route: 031
     Dates: start: 20160628
  2. RANIBIZUMAB. [Suspect]
     Active Substance: RANIBIZUMAB
     Dosage: 0.5 MG, RIGHT EYE
     Route: 031
     Dates: start: 20160310
  3. RANIBIZUMAB. [Suspect]
     Active Substance: RANIBIZUMAB
     Indication: NEOVASCULAR AGE-RELATED MACULAR DEGENERATION
     Dosage: 0.5 MG, RIGHT EYE
     Route: 031
     Dates: start: 20150804
  4. RANIBIZUMAB. [Suspect]
     Active Substance: RANIBIZUMAB
     Dosage: 0.5 MG, RIGHT EYE
     Route: 031
     Dates: start: 20151208
  5. RANIBIZUMAB. [Suspect]
     Active Substance: RANIBIZUMAB
     Dosage: 0.5 MG, RIGHT EYE
     Route: 031
     Dates: start: 20160913, end: 20160913
  6. RANIBIZUMAB. [Suspect]
     Active Substance: RANIBIZUMAB
     Dosage: 0.5 MG, RIGHT EYE
     Route: 031
     Dates: start: 20160121
  7. RANIBIZUMAB. [Suspect]
     Active Substance: RANIBIZUMAB
     Dosage: 0.5 MG, RIGHT EYE
     Route: 031
     Dates: start: 20160510
  8. RANIBIZUMAB. [Suspect]
     Active Substance: RANIBIZUMAB
     Dosage: 0.5 MG, RIGHT EYE
     Route: 031
     Dates: start: 20151001

REACTIONS (2)
  - Subretinal fluid [Recovered/Resolved]
  - Retinal oedema [Recovered/Resolved]

NARRATIVE: CASE EVENT DATE: 20161207
